FAERS Safety Report 5017557-2 (Version None)
Quarter: 2006Q2

REPORT INFORMATION
  Report Type: 
  Country: None (occurrence: None)
  Receive Date: 20060601
  Receipt Date: 20060601
  Transmission Date: 20061013
  Serious: Yes (Other)
  Sender: FDA-Public Use
  Company Number: None

PATIENT
  Age: 57 Year
  Sex: Male
  Weight: 181.4388 kg

DRUGS (1)
  1. EZETIMIBE  10 MG [Suspect]
     Indication: HYPERLIPIDAEMIA
     Dosage: 5 MG ONCE PO   1 DOSE
     Route: 048

REACTIONS (4)
  - CHEST PAIN [None]
  - DIZZINESS [None]
  - HEADACHE [None]
  - NAUSEA [None]
